FAERS Safety Report 25965074 (Version 1)
Quarter: 2025Q4

REPORT INFORMATION
  Report Type: Spontaneous
  Country: JP (occurrence: JP)
  Receive Date: 20251027
  Receipt Date: 20251027
  Transmission Date: 20260117
  Serious: Yes (Death)
  Sender: ELI LILLY AND COMPANY
  Company Number: JP-NShinyaku-EVA202402253ZZLILLY

PATIENT
  Age: 73 Year
  Sex: Female

DRUGS (40)
  1. TADALAFIL [Suspect]
     Active Substance: TADALAFIL
     Indication: Pulmonary arterial hypertension
     Dosage: UNK
     Route: 048
  2. TADALAFIL [Suspect]
     Active Substance: TADALAFIL
     Indication: Product used for unknown indication
     Dosage: UNK
     Route: 048
  3. UPTRAVI [Suspect]
     Active Substance: SELEXIPAG
     Indication: Pulmonary arterial hypertension
     Dosage: 0.8 MG, DAILY
     Route: 048
     Dates: start: 20230607
  4. UPTRAVI [Suspect]
     Active Substance: SELEXIPAG
     Dosage: 1.6 MG
     Route: 048
     Dates: end: 20250903
  5. UPTRAVI [Suspect]
     Active Substance: SELEXIPAG
     Dosage: 2.0 MG
     Route: 048
     Dates: start: 20250904, end: 20250930
  6. SAMSCA [Concomitant]
     Active Substance: TOLVAPTAN
     Dosage: UNKNOWN
     Route: 048
  7. FUROSEMIDE [Concomitant]
     Active Substance: FUROSEMIDE
     Dosage: UNKNOWN
     Route: 048
  8. FUROSEMIDE [Concomitant]
     Active Substance: FUROSEMIDE
     Dosage: UNKNOWN
  9. FUROSEMIDE [Concomitant]
     Active Substance: FUROSEMIDE
     Dosage: UNKNOWN
  10. FUROSEMIDE [Concomitant]
     Active Substance: FUROSEMIDE
     Dosage: UNKNOWN
  11. WARFARIN [Concomitant]
     Active Substance: WARFARIN
     Dosage: UNKNOWN
     Route: 048
  12. EPLERENONE [Concomitant]
     Active Substance: EPLERENONE
     Dosage: UNKNOWN
     Route: 048
  13. TRICHLORMETHIAZIDE [Concomitant]
     Active Substance: TRICHLORMETHIAZIDE
     Dosage: UNKNOWN
     Route: 048
  14. TRICHLORMETHIAZIDE [Concomitant]
     Active Substance: TRICHLORMETHIAZIDE
     Dosage: UNKNOWN
  15. TRICHLORMETHIAZIDE [Concomitant]
     Active Substance: TRICHLORMETHIAZIDE
     Dosage: UNKNOWN
  16. TRICHLORMETHIAZIDE [Concomitant]
     Active Substance: TRICHLORMETHIAZIDE
     Dosage: UNKNOWN
  17. METHIMAZOLE [Concomitant]
     Active Substance: METHIMAZOLE
     Dosage: UNKNOWN
     Route: 048
  18. BISOPROLOL FUMARATE [Concomitant]
     Active Substance: BISOPROLOL FUMARATE
     Dosage: UNKNOWN
     Route: 048
  19. BISOPROLOL FUMARATE [Concomitant]
     Active Substance: BISOPROLOL FUMARATE
     Dosage: UNKNOWN
  20. BISOPROLOL FUMARATE [Concomitant]
     Active Substance: BISOPROLOL FUMARATE
     Dosage: UNKNOWN
  21. BISOPROLOL FUMARATE [Concomitant]
     Active Substance: BISOPROLOL FUMARATE
     Dosage: UNKNOWN
  22. FEBUXOSTAT [Concomitant]
     Active Substance: FEBUXOSTAT
     Dosage: UNKNOWN
     Route: 048
  23. FEBUXOSTAT [Concomitant]
     Active Substance: FEBUXOSTAT
     Dosage: UNKNOWN
  24. FEBUXOSTAT [Concomitant]
     Active Substance: FEBUXOSTAT
     Dosage: UNKNOWN
  25. FEBUXOSTAT [Concomitant]
     Active Substance: FEBUXOSTAT
     Dosage: UNKNOWN
  26. DIAMOX SEQUELS [Concomitant]
     Active Substance: ACETAZOLAMIDE
     Dosage: UNKNOWN
     Route: 048
  27. ELDECALCITOL [Concomitant]
     Active Substance: ELDECALCITOL
     Dosage: UNKNOWN
     Route: 048
  28. ELDECALCITOL [Concomitant]
     Active Substance: ELDECALCITOL
     Dosage: UNKNOWN
  29. ELDECALCITOL [Concomitant]
     Active Substance: ELDECALCITOL
     Dosage: UNKNOWN
  30. ELDECALCITOL [Concomitant]
     Active Substance: ELDECALCITOL
     Dosage: UNKNOWN
  31. ETIZOLAM [Concomitant]
     Active Substance: ETIZOLAM
     Dosage: UNKNOWN
     Route: 048
  32. ETIZOLAM [Concomitant]
     Active Substance: ETIZOLAM
     Dosage: UNKNOWN
  33. ETIZOLAM [Concomitant]
     Active Substance: ETIZOLAM
     Dosage: UNKNOWN
  34. ETIZOLAM [Concomitant]
     Active Substance: ETIZOLAM
     Dosage: UNKNOWN
  35. HEPARINOID [Concomitant]
     Dosage: UNKNOWN
     Route: 048
  36. HEPARINOID [Concomitant]
     Dosage: UNKNOWN
  37. HEPARINOID [Concomitant]
     Dosage: UNKNOWN
  38. HEPARINOID [Concomitant]
     Dosage: UNKNOWN
  39. BERAPROST SODIUM TOWA [Concomitant]
     Dosage: UNK
     Route: 048
     Dates: end: 20250930
  40. SILDENAFIL CITRATE [Concomitant]
     Active Substance: SILDENAFIL CITRATE
     Route: 048

REACTIONS (14)
  - Pulmonary arterial hypertension [Fatal]
  - Pollakiuria [Not Recovered/Not Resolved]
  - Tinnitus [Not Recovered/Not Resolved]
  - Hypogeusia [Not Recovered/Not Resolved]
  - Sneezing [Recovered/Resolved]
  - COVID-19 [Unknown]
  - Cough [Not Recovered/Not Resolved]
  - Saliva altered [Not Recovered/Not Resolved]
  - Rhinitis allergic [Unknown]
  - Dizziness [Not Recovered/Not Resolved]
  - Malaise [Not Recovered/Not Resolved]
  - Listless [Not Recovered/Not Resolved]
  - Rhinorrhoea [Not Recovered/Not Resolved]
  - Hypoacusis [Not Recovered/Not Resolved]

NARRATIVE: CASE EVENT DATE: 20230607
